FAERS Safety Report 5548197-4 (Version None)
Quarter: 2007Q4

REPORT INFORMATION
  Report Type: 
  Country: None (occurrence: None)
  Receive Date: 20071206
  Receipt Date: 20071122
  Transmission Date: 20080405
  Serious: Yes (Life-Threatening, Hospitalization, Other)
  Sender: FDA-Public Use
  Company Number: DSA_30935_2007

PATIENT
  Age: 78 Year
  Sex: Female

DRUGS (5)
  1. ENALAPRIL MALEATE [Suspect]
     Indication: HYPERTENSION
     Dosage: 20 MG QD ORAL
     Route: 048
     Dates: end: 20070213
  2. DICLOFENAC (DICLOFENAC) [Suspect]
     Indication: OSTEOARTHRITIS
     Dosage: DF TOPICAL
     Route: 061
     Dates: start: 20070205, end: 20070213
  3. HYDROXYZINE [Concomitant]
  4. OMEPRAZOLE [Concomitant]
  5. QUININE/THIAMINE [Concomitant]

REACTIONS (12)
  - ACUTE ABDOMEN [None]
  - DIVERTICULUM [None]
  - GASTROINTESTINAL HAEMORRHAGE [None]
  - HYPOXIA [None]
  - LARGE INTESTINE PERFORATION [None]
  - METABOLIC ACIDOSIS [None]
  - PANCREATITIS [None]
  - PERITONITIS [None]
  - PNEUMOPERITONEUM [None]
  - POST PROCEDURAL COMPLICATION [None]
  - RENAL FAILURE [None]
  - SEPTIC SHOCK [None]
